FAERS Safety Report 22376615 (Version 2)
Quarter: 2023Q2

REPORT INFORMATION
  Report Type: Spontaneous
  Country: US (occurrence: US)
  Receive Date: 20230528
  Receipt Date: 20230528
  Transmission Date: 20230721
  Serious: No
  Sender: FDA-Public Use
  Company Number: US-Dermavant-000592

PATIENT
  Sex: Female

DRUGS (2)
  1. TAPINAROF [Suspect]
     Active Substance: TAPINAROF
     Route: 061
     Dates: start: 20221022, end: 20221128
  2. HUMALOG [Concomitant]
     Active Substance: INSULIN LISPRO
     Dates: start: 20221022, end: 20221105

REACTIONS (5)
  - Flushing [Unknown]
  - Ear discomfort [Unknown]
  - Erythema [Unknown]
  - Pharyngeal swelling [Unknown]
  - Eye swelling [Unknown]

NARRATIVE: CASE EVENT DATE: 20221022
